FAERS Safety Report 6160432-0 (Version None)
Quarter: 2009Q2

REPORT INFORMATION
  Report Type: 
  Country: None (occurrence: None)
  Receive Date: 20090416
  Receipt Date: 20090407
  Transmission Date: 20091009
  Serious: Yes (Other)
  Sender: FDA-Public Use
  Company Number: CIP09000885

PATIENT
  Sex: Female

DRUGS (1)
  1. ACTONEL [Suspect]

REACTIONS (5)
  - ABDOMINAL PAIN UPPER [None]
  - CHEST PAIN [None]
  - CONVULSION [None]
  - GASTRIC DISORDER [None]
  - IRRITABLE BOWEL SYNDROME [None]
